FAERS Safety Report 5601166-8 (Version None)
Quarter: 2008Q1

REPORT INFORMATION
  Report Type: 
  Country: None (occurrence: None)
  Receive Date: 20080122
  Receipt Date: 20080122
  Transmission Date: 20080703
  Serious: Yes (Life-Threatening)
  Sender: FDA-Public Use
  Company Number: None

PATIENT
  Age: 46 Year
  Sex: Male
  Weight: 115.6672 kg

DRUGS (2)
  1. TRICOR [Suspect]
     Indication: BLOOD TRIGLYCERIDES INCREASED
     Dosage: 90 MG 1 A DAY PO
     Route: 048
     Dates: start: 20071107, end: 20080104
  2. TRICOR [Suspect]
     Indication: BLOOD TRIGLYCERIDES INCREASED
     Dosage: 90 MG 1 A DAY PO
     Route: 048
     Dates: start: 20080104, end: 20080104

REACTIONS (10)
  - ALVEOLITIS ALLERGIC [None]
  - ANXIETY [None]
  - ASTHMA [None]
  - BRONCHITIS [None]
  - DEPRESSION [None]
  - INSOMNIA [None]
  - LUNG DISORDER [None]
  - NERVOUSNESS [None]
  - PAIN [None]
  - PANIC ATTACK [None]
